FAERS Safety Report 6370297-X (Version None)
Quarter: 2009Q3

REPORT INFORMATION
  Report Type: 
  Country: None (occurrence: None)
  Receive Date: 20090923
  Receipt Date: 20090914
  Transmission Date: 20100115
  Serious: Yes (Other)
  Sender: FDA-Public Use
  Company Number: DE-AMGEN-US359017

PATIENT
  Sex: Female
  Weight: 98 kg

DRUGS (3)
  1. ENBREL [Suspect]
     Indication: RHEUMATOID ARTHRITIS
     Route: 058
     Dates: start: 20080929, end: 20081201
  2. NOVALGIN [Concomitant]
     Dosage: UNKNOWN
     Route: 048
  3. FENTANYL TRANSDERMAL SYSTEM [Concomitant]
     Dosage: UNKNOWN
     Route: 062

REACTIONS (4)
  - ANTIBODY TEST POSITIVE [None]
  - HERPES ZOSTER [None]
  - PULMONARY OEDEMA [None]
  - RENAL FAILURE [None]
